FAERS Safety Report 5023721-9 (Version None)
Quarter: 2006Q2

REPORT INFORMATION
  Report Type: 
  Country: None (occurrence: None)
  Receive Date: 20060428
  Receipt Date: 20051103
  Transmission Date: 20061013
  Serious: Yes (Other)
  Sender: FDA-Public Use
  Company Number: US-2005-023141

PATIENT
  Age: 72 Year
  Sex: Male
  Weight: 86 kg

DRUGS (3)
  1. LEUKINE [Suspect]
     Indication: MALIGNANT MELANOMA
     Dosage: 50 MCG PER LESION, DAILY, INTRALESIONAL
     Route: 026
     Dates: start: 20051003, end: 20051007
  2. LEUKINE [Suspect]
     Indication: MALIGNANT MELANOMA
     Dosage: 50 MCG PER LESION, DAILY, INTRALESIONAL
     Route: 026
     Dates: start: 20051031, end: 20051102
  3. ACIPHEX [Concomitant]

REACTIONS (4)
  - LOSS OF CONSCIOUSNESS [None]
  - MALIGNANT NEOPLASM PROGRESSION [None]
  - NAUSEA [None]
  - VOMITING [None]
